FAERS Safety Report 19123744 (Version 1)
Quarter: 2021Q2

REPORT INFORMATION
  Report Type: Other
  Country: US (occurrence: US)
  Receive Date: 20210412
  Receipt Date: 20210412
  Transmission Date: 20210717
  Serious: Yes (Death)
  Sender: FDA-Public Use
  Company Number: US-ROCHE-2037735

PATIENT
  Sex: Female

DRUGS (2)
  1. VALCYTE [Suspect]
     Active Substance: VALGANCICLOVIR HYDROCHLORIDE
     Indication: LUNG TRANSPLANT
     Dosage: HER VALGANCICLOVIR TREATMENT DATE WAS ON 18/MAR/2016. HER LAST VALGANCICLOVIR TREATMENT DATE WAS ON
     Route: 048
  2. VALCYTE [Suspect]
     Active Substance: VALGANCICLOVIR HYDROCHLORIDE
     Dosage: ^1 TAB MWF^
     Route: 048

REACTIONS (2)
  - Death [Fatal]
  - Off label use [Unknown]
